FAERS Safety Report 24647990 (Version 1)
Quarter: 2024Q4

REPORT INFORMATION
  Report Type: Spontaneous
  Country: US (occurrence: US)
  Receive Date: 20241121
  Receipt Date: 20241121
  Transmission Date: 20250115
  Serious: Yes (Other)
  Sender: DR REDDYS
  Company Number: US-DRL-USA-LIT/USA/24/0017062

PATIENT
  Age: 39 Year
  Sex: Female

DRUGS (17)
  1. FENTANYL [Suspect]
     Active Substance: FENTANYL
     Indication: Pain
     Dosage: 50 MCG
  2. PROPOFOL [Suspect]
     Active Substance: PROPOFOL
     Indication: Anaesthesia
     Dosage: 200 MCG BOLUS
  3. NEOSTIGMINE [Suspect]
     Active Substance: NEOSTIGMINE
     Indication: Neuromuscular blockade reversal
     Dosage: 5 MCG
  4. ONDANSETRON [Suspect]
     Active Substance: ONDANSETRON
     Indication: Product used for unknown indication
     Dosage: 100 MCG
  5. LIDOCAINE [Suspect]
     Active Substance: LIDOCAINE
     Indication: Anaesthesia
     Dosage: 100 MCG
  6. KETAMINE [Suspect]
     Active Substance: KETAMINE
     Indication: Sedation
     Dosage: 30 MG
  7. HYDROMORPHONE [Suspect]
     Active Substance: HYDROMORPHONE
     Indication: Pain
     Dosage: 0.5 MG/0.5 ML
  8. HYDROMORPHONE [Suspect]
     Active Substance: HYDROMORPHONE
     Indication: Pain
     Dosage: 0.5 MG/0.5 ML
  9. OXYCODONE [Suspect]
     Active Substance: OXYCODONE
     Indication: Pain
     Dosage: 10 MG ORAL EVERY 4 HOURS PRN
     Route: 048
  10. SEVOFLURANE [Suspect]
     Active Substance: SEVOFLURANE
     Indication: Anaesthesia
  11. ROCURONIUM [Suspect]
     Active Substance: ROCURONIUM BROMIDE
     Indication: Anaesthesia
     Dosage: 30 MCG
  12. ENOXAPARIN [Suspect]
     Active Substance: ENOXAPARIN
     Indication: Deep vein thrombosis
     Dosage: 40 MG DAILY
  13. ASPIRIN [Suspect]
     Active Substance: ASPIRIN
     Indication: Antiplatelet therapy
     Dosage: 325 MG TWICE DAILY FOR 6 WEEKS
  14. SODIUM CHLORIDE [Suspect]
     Active Substance: SODIUM CHLORIDE
     Indication: Product used for unknown indication
  15. ATROPINE [Suspect]
     Active Substance: ATROPINE
     Indication: Neuromuscular blockade reversal
  16. NALOXONE [Suspect]
     Active Substance: NALOXONE
     Indication: Product used for unknown indication
     Dosage: 4MG NASALLY PRN
     Route: 045
  17. DOCUSATE SODIUM [Suspect]
     Active Substance: DOCUSATE SODIUM
     Indication: Product used for unknown indication

REACTIONS (2)
  - Exposure during pregnancy [Unknown]
  - Product use in unapproved indication [Unknown]
